FAERS Safety Report 15315953 (Version 2)
Quarter: 2018Q3

REPORT INFORMATION
  Report Type: Spontaneous
  Country: US (occurrence: US)
  Receive Date: 20180824
  Receipt Date: 20180927
  Transmission Date: 20181010
  Serious: No
  Sender: FDA-Public Use
  Company Number: US-ASTRAZENECA-2018SE97778

PATIENT
  Age: 27546 Day
  Sex: Female
  Weight: 70.3 kg

DRUGS (4)
  1. BEVESPI AEROSPHERE [Suspect]
     Active Substance: FORMOTEROL FUMARATE\GLYCOPYRROLATE
     Indication: COUGH
     Dosage: 1 SPRAY
     Route: 055
     Dates: start: 20180801, end: 20180803
  2. BEVESPI AEROSPHERE [Suspect]
     Active Substance: FORMOTEROL FUMARATE\GLYCOPYRROLATE
     Indication: COUGH
     Dosage: 9/4.8 UG 2 INHALATIONS TWICE DAILY
     Route: 055
     Dates: start: 20180723, end: 201807
  3. BEVESPI AEROSPHERE [Suspect]
     Active Substance: FORMOTEROL FUMARATE\GLYCOPYRROLATE
     Indication: HEADACHE
     Dosage: 9/4.8 UG 2 INHALATIONS TWICE DAILY
     Route: 055
     Dates: start: 20180723, end: 201807
  4. BEVESPI AEROSPHERE [Suspect]
     Active Substance: FORMOTEROL FUMARATE\GLYCOPYRROLATE
     Indication: HEADACHE
     Dosage: 1 SPRAY
     Route: 055
     Dates: start: 20180801, end: 20180803

REACTIONS (8)
  - Pruritus [Recovering/Resolving]
  - Feeling jittery [Recovering/Resolving]
  - Product use in unapproved indication [Unknown]
  - Scratch [Recovering/Resolving]
  - Headache [Unknown]
  - Dry mouth [Unknown]
  - Off label use [Unknown]
  - Nervousness [Recovering/Resolving]

NARRATIVE: CASE EVENT DATE: 20180705
